FAERS Safety Report 21631186 (Version 6)
Quarter: 2024Q2

REPORT INFORMATION
  Report Type: Spontaneous
  Country: US (occurrence: US)
  Receive Date: 20221123
  Receipt Date: 20240627
  Transmission Date: 20240716
  Serious: No
  Sender: FDA-Public Use
  Company Number: US-GLAXOSMITHKLINE-US2022AMR170025

PATIENT
  Age: 54 Year
  Sex: Female
  Weight: 44 kg

DRUGS (11)
  1. ZEJULA [Suspect]
     Active Substance: NIRAPARIB
     Indication: Fallopian tube cancer
     Dosage: 200 MG, QD
     Dates: start: 20211220
  2. ZEJULA [Suspect]
     Active Substance: NIRAPARIB
     Indication: Fallopian tube cancer
     Dosage: 200 MG, QD
  3. ZEJULA [Suspect]
     Active Substance: NIRAPARIB
     Dosage: 200 MG, QD
     Route: 048
  4. ZEJULA [Suspect]
     Active Substance: NIRAPARIB
     Dosage: 200 MG, QD
     Route: 048
     Dates: start: 20220118
  5. DICYCLOMINE HYDROCHLORIDE [Concomitant]
     Active Substance: DICYCLOMINE HYDROCHLORIDE
     Indication: Product used for unknown indication
     Dosage: 20 MG
  6. MIRALAX [Concomitant]
     Active Substance: POLYETHYLENE GLYCOL 3350
     Indication: Product used for unknown indication
     Dosage: 17 G, (POWDER PACK)
  7. IRON [Concomitant]
     Active Substance: IRON
     Indication: Product used for unknown indication
     Dosage: UNK, 325 (65)MG
  8. LISINOPRIL [Concomitant]
     Active Substance: LISINOPRIL
     Indication: Product used for unknown indication
     Dosage: UNK
  9. LISINOPRIL [Concomitant]
     Active Substance: LISINOPRIL
     Dosage: 5 MG
  10. VITAMIN B12 [Concomitant]
     Active Substance: CYANOCOBALAMIN
     Indication: Product used for unknown indication
     Dosage: UNK
  11. VITAMIN B12 [Concomitant]
     Active Substance: CYANOCOBALAMIN
     Dosage: 5000 UG,  ( TAB RAPDIS)

REACTIONS (10)
  - Nausea [Recovering/Resolving]
  - Headache [Recovering/Resolving]
  - Heart rate increased [Not Recovered/Not Resolved]
  - Adverse drug reaction [Recovering/Resolving]
  - Fatigue [Recovering/Resolving]
  - Abdominal discomfort [Recovering/Resolving]
  - Hypertension [Recovering/Resolving]
  - Pain [Unknown]
  - Arthritis [Unknown]
  - Off label use [Unknown]

NARRATIVE: CASE EVENT DATE: 20211220
